FAERS Safety Report 9251304 (Version 5)
Quarter: 2014Q2

REPORT INFORMATION
  Report Type: Spontaneous
  Country: US (occurrence: US)
  Receive Date: 20130424
  Receipt Date: 20140530
  Transmission Date: 20141212
  Serious: Yes (Hospitalization, Other)
  Sender: FDA-Public Use
  Company Number: US-ASTRAZENECA-2013SE27321

PATIENT
  Age: 25042 Day
  Sex: Female

DRUGS (36)
  1. NEXIUM [Suspect]
     Indication: GASTROOESOPHAGEAL REFLUX DISEASE
     Route: 048
     Dates: start: 20070423
  2. NEXIUM [Suspect]
     Indication: GASTROOESOPHAGEAL REFLUX DISEASE
     Route: 048
     Dates: start: 20070601
  3. NEXIUM [Suspect]
     Indication: GASTROOESOPHAGEAL REFLUX DISEASE
     Dosage: DAILY
     Route: 048
     Dates: start: 200801, end: 20100329
  4. NEXIUM [Suspect]
     Indication: GASTROOESOPHAGEAL REFLUX DISEASE
     Route: 048
     Dates: start: 20100329
  5. NEXIUM [Suspect]
     Indication: GASTROOESOPHAGEAL REFLUX DISEASE
     Route: 048
     Dates: start: 20101024
  6. TUMS [Concomitant]
     Dates: start: 1959, end: 20110329
  7. ALKA SELTZER [Concomitant]
     Dates: start: 1959, end: 20110329
  8. MILK OF MAGNESIA [Concomitant]
     Dates: start: 1959, end: 20110329
  9. GAVISCON [Concomitant]
     Dates: start: 1959, end: 20110329
  10. PEPTO BISMOL [Concomitant]
     Dates: start: 1959, end: 20110329
  11. ROLAIDS [Concomitant]
     Dates: start: 1959, end: 20110329
  12. MYLANTA [Concomitant]
     Dates: start: 1959, end: 20110329
  13. HYDRALAZINE [Concomitant]
  14. INSULIN [Concomitant]
     Indication: DIABETES MELLITUS
  15. ASPIRIN [Concomitant]
     Indication: CARDIAC DISORDER
     Route: 048
     Dates: start: 20101024
  16. PANTOPRAZOLE [Concomitant]
     Indication: GASTROOESOPHAGEAL REFLUX DISEASE
  17. NOREL [Concomitant]
     Indication: PAIN
  18. COZAAR [Concomitant]
     Indication: ANXIETY
     Route: 048
     Dates: start: 20101024
  19. XANAX [Concomitant]
     Route: 048
  20. XANAX [Concomitant]
     Route: 048
     Dates: start: 20101024
  21. ACTONEL [Concomitant]
     Route: 048
  22. ZOCOR [Concomitant]
     Route: 048
  23. OMEPRAZOLE [Concomitant]
  24. HYDROMORPHONE [Concomitant]
  25. LOPRESSOR [Concomitant]
  26. LOSARTAN [Concomitant]
     Dates: start: 20130416
  27. HYDROCODONE [Concomitant]
     Dates: start: 2004
  28. FAMOTIDINE [Concomitant]
     Dates: start: 20040828
  29. NIFEDIPINE [Concomitant]
     Dates: start: 20040305
  30. PREDNISOLONE [Concomitant]
     Dates: start: 20110907
  31. FUROSEMIDE [Concomitant]
     Dates: start: 20080324
  32. NITROFURANTOIN MONOHYDRATE [Concomitant]
     Dosage: ONE CAPSULE ORALLY TWO TIMES A DAY
     Dates: start: 20091120
  33. CLONIDINE HCL [Concomitant]
     Dates: start: 20081022
  34. LOVASTATIN [Concomitant]
     Dates: start: 20040616
  35. FELODIPINE [Concomitant]
     Dates: start: 20061214
  36. MELOXICAM [Concomitant]
     Dates: start: 20100714

REACTIONS (10)
  - Hip fracture [Unknown]
  - Femur fracture [Unknown]
  - Cerebrovascular accident [Unknown]
  - Aortic disorder [Unknown]
  - Osteoporosis [Unknown]
  - Fall [Unknown]
  - Cataract [Unknown]
  - Arthritis [Unknown]
  - Bone disorder [Unknown]
  - Osteoarthritis [Unknown]
